FAERS Safety Report 7435566-0 (Version None)
Quarter: 2011Q2

REPORT INFORMATION
  Report Type: 
  Country: None (occurrence: None)
  Receive Date: 20110425
  Receipt Date: 20110411
  Transmission Date: 20111010
  Serious: Yes (Death, Hospitalization)
  Sender: FDA-Public Use
  Company Number: US-CELGENEUS-163-21880-11030882

PATIENT
  Sex: Male

DRUGS (26)
  1. ALLEGRA [Concomitant]
     Route: 048
  2. COLCRYS [Concomitant]
     Dosage: .6 MILLIGRAM
     Route: 048
  3. HUMALOG [Concomitant]
     Dosage: 4U
     Route: 058
  4. ULORIC [Concomitant]
     Dosage: 40 MILLIGRAM
     Route: 048
  5. CEPACOL [Concomitant]
     Dosage: 5-7.5MG
     Route: 048
  6. MULTI-VITAMIN [Concomitant]
     Dosage: 1 TABLET
     Route: 048
  7. COREG [Concomitant]
     Dosage: 6.25 MILLIGRAM
     Route: 048
  8. MUCINEX [Concomitant]
     Route: 065
  9. VITAMIN D [Concomitant]
     Dosage: 50000 UNIT
     Route: 048
  10. BACTRIM DS [Concomitant]
     Dosage: 800-160MG
     Route: 048
  11. NEURONTIN [Concomitant]
     Dosage: 300 MILLIGRAM
     Route: 048
  12. TESSALON [Concomitant]
     Dosage: 100 MILLIGRAM
     Route: 048
  13. GLUCOTROL XL [Concomitant]
     Dosage: 10 MILLIGRAM
     Route: 048
  14. LANTUS [Concomitant]
     Dosage: 100/ML; 40 UNITS A.M., 12 UNITS P.M.
     Route: 065
  15. METOZOLV ODT [Concomitant]
     Indication: NAUSEA
     Dosage: 10 MILLIGRAM
     Route: 060
  16. NORCO [Concomitant]
     Indication: PAIN
     Dosage: 10-325MG
     Route: 048
  17. ACETAMINOPHEN [Concomitant]
     Dosage: 500 MILLIGRAM
     Route: 048
  18. AMIODARONE HCL [Concomitant]
     Dosage: 200 MILLIGRAM
     Route: 048
  19. BUMEX [Concomitant]
     Dosage: 2 MILLIGRAM
     Route: 048
  20. DEXAMETHASONE [Concomitant]
     Dosage: 40 MILLIGRAM
     Route: 048
  21. INDOCIN [Concomitant]
     Route: 048
  22. PROTONIX [Concomitant]
     Dosage: 40 MILLIGRAM
     Route: 048
  23. REVLIMID [Suspect]
     Dosage: 10 MILLIGRAM
     Route: 048
     Dates: start: 20110101, end: 20110101
  24. ACYCLOVIR [Concomitant]
     Dosage: 400 MILLIGRAM
     Route: 048
  25. CRESTOR [Concomitant]
     Dosage: 20 MILLIGRAM
     Route: 048
  26. PREDNISONE [Concomitant]
     Dosage: 5 MILLIGRAM
     Route: 048

REACTIONS (3)
  - RESPIRATORY FAILURE [None]
  - LYMPHOMA [None]
  - SEPSIS [None]
